FAERS Safety Report 10418438 (Version 1)
Quarter: 2014Q3

REPORT INFORMATION
  Report Type: Spontaneous
  Country: US (occurrence: None)
  Receive Date: 20140827
  Receipt Date: 20140827
  Transmission Date: 20150326
  Serious: Yes (Death)
  Sender: FDA-Public Use
  Company Number: NSR_01609_2014

PATIENT
  Age: 54 Year
  Sex: Male

DRUGS (1)
  1. BACLOFEN. [Suspect]
     Active Substance: BACLOFEN
     Indication: PARAPARESIS
     Dosage: DF
     Route: 037

REACTIONS (6)
  - Multi-organ failure [None]
  - Toxicity to various agents [None]
  - Status epilepticus [None]
  - Incorrect dose administered by device [None]
  - Unresponsive to stimuli [None]
  - Accidental overdose [None]
